FAERS Safety Report 9169888 (Version 1)
Quarter: 2013Q1

REPORT INFORMATION
  Report Type: Spontaneous
  Country: US (occurrence: None)
  Receive Date: 20130307
  Receipt Date: 20130307
  Transmission Date: 20140127
  Serious: Yes (Hospitalization)
  Sender: FDA-Public Use
  Company Number: TUK2013A00046

PATIENT
  Age: 76 Year
  Sex: Male

DRUGS (10)
  1. PIOGLITAZONE HYDROCHLORIDE [Suspect]
     Indication: PRODUCT USED FOR UNKNOWN INDICATION
     Route: 048
     Dates: start: 20080304, end: 20130205
  2. ASPIRIN [Concomitant]
  3. BUMETANIDE [Concomitant]
  4. ISOSORBIDE [Concomitant]
  5. LISINOPRIL [Concomitant]
  6. METFORMIN HYDROCHLORIDE [Concomitant]
  7. NIFEDIPINE [Concomitant]
  8. SIMVASTATIN [Concomitant]
  9. TRIFLUOPERAZINE [Concomitant]
  10. TRIMETHOPRIM [Concomitant]

REACTIONS (2)
  - Urinary tract infection [None]
  - Bladder transitional cell carcinoma [None]
